FAERS Safety Report 6567807-6 (Version None)
Quarter: 2010Q1

REPORT INFORMATION
  Report Type: 
  Country: None (occurrence: None)
  Receive Date: 20100203
  Receipt Date: 20100125
  Transmission Date: 20100710
  Serious: Yes (Hospitalization)
  Sender: FDA-Public Use
  Company Number: CA-JNJFOC-20090205414

PATIENT
  Sex: Female
  Weight: 72 kg

DRUGS (19)
  1. REMICADE [Suspect]
     Indication: RHEUMATOID ARTHRITIS
     Route: 042
  2. REMICADE [Suspect]
     Route: 042
  3. REMICADE [Suspect]
     Route: 042
  4. REMICADE [Suspect]
     Route: 042
  5. REMICADE [Suspect]
     Route: 042
  6. REMICADE [Suspect]
     Route: 042
  7. REMICADE [Suspect]
     Route: 042
  8. REMICADE [Suspect]
     Route: 042
  9. ACETAMINOPHEN [Concomitant]
     Route: 048
  10. CELEBREX [Concomitant]
     Indication: ANTIINFLAMMATORY THERAPY
     Route: 048
  11. METHOTREXATE [Concomitant]
     Indication: ARTHRITIS
     Route: 058
  12. CALCITE D [Concomitant]
     Indication: VITAMIN SUPPLEMENTATION
     Route: 048
  13. CALCITE D [Concomitant]
     Route: 048
  14. FOSAMAX [Concomitant]
     Indication: OSTEOPOROSIS
     Route: 048
  15. FOLIC ACID [Concomitant]
     Indication: VITAMIN SUPPLEMENTATION
     Route: 048
  16. HYDROXYCHLOROQUINE SULFATE [Concomitant]
     Indication: ARTHRITIS
     Route: 048
  17. SYNTHROID [Concomitant]
     Indication: HYPOTHYROIDISM
     Dosage: STARTED BEFORE 1996
     Route: 048
  18. ATENOLOL [Concomitant]
     Indication: HYPERTENSION
     Route: 048
  19. HYZAAR [Concomitant]
     Indication: HYPERTENSION
     Dosage: DOSE 50/12.5 MG
     Route: 048

REACTIONS (3)
  - CHEST PAIN [None]
  - DYSPNOEA EXERTIONAL [None]
  - ORTHOPNOEA [None]
